FAERS Safety Report 9409630 (Version 3)
Quarter: 2018Q2

REPORT INFORMATION
  Report Type: Report from Study
  Country: BR (occurrence: BR)
  Receive Date: 20130719
  Receipt Date: 20180424
  Transmission Date: 20180711
  Serious: Yes (Life-Threatening, Hospitalization, Other)
  Sender: FDA-Public Use
  Company Number: PHHY2013BR075999

PATIENT
  Age: 74 Year
  Sex: Female
  Weight: 120 kg

DRUGS (12)
  1. LOSARTAN. [Concomitant]
     Active Substance: LOSARTAN
     Indication: HYPERTENSION
     Dosage: 50 MG, (2 TABLETSDAILY)
     Route: 048
  2. ARADOIS [Suspect]
     Active Substance: LOSARTAN POTASSIUM
     Indication: HYPERTENSION
     Dosage: UNK UKN, UNK
     Route: 065
  3. BETAMIDE [Concomitant]
     Indication: DIABETES MELLITUS
     Dosage: 50 MG, (1 TABLET DAILY)
     Route: 048
  4. AAS [Concomitant]
     Active Substance: ASPIRIN
     Indication: ANGIOPATHY
     Dosage: 2 DF, DAILY
     Route: 048
  5. HYDROCHLOROTHIAZIDE. [Concomitant]
     Active Substance: HYDROCHLOROTHIAZIDE
     Indication: POLYURIA
     Dosage: 50 MG, (1 TABLET DAILY)
     Route: 048
  6. GLIFAGE [Concomitant]
     Active Substance: METFORMIN HYDROCHLORIDE
     Indication: DIABETES MELLITUS
     Dosage: 850 MG, (2 TABLET DAILY)
     Route: 048
  7. DIOVAN [Suspect]
     Active Substance: VALSARTAN
     Indication: HYPERTENSION
     Dosage: 2 DF,  (2 TABLET DAILY)
     Route: 048
  8. DIOVAN [Suspect]
     Active Substance: VALSARTAN
     Dosage: 3 DF, (3 TABLET DAILY)
     Route: 048
  9. SIMVASTATIN. [Concomitant]
     Active Substance: SIMVASTATIN
     Indication: BLOOD GLUCOSE ABNORMAL
     Dosage: 40 MG, (1 TABLET DAILY)
     Route: 048
  10. FORASEQ [Suspect]
     Active Substance: BUDESONIDE\FORMOTEROL FUMARATE
     Indication: BRONCHITIS
     Dosage: 1 DF, DAILY
     Route: 055
     Dates: start: 2013
  11. ATENSINA [Concomitant]
     Active Substance: CLONIDINE
     Indication: HYPERTENSION
     Dosage: 0.200 MG, (2 TABLET DAILY)
     Route: 048
  12. FORASEQ [Suspect]
     Active Substance: BUDESONIDE\FORMOTEROL FUMARATE
     Indication: ASTHMA
     Dosage: 1 DF, Q8H
     Route: 055
     Dates: start: 2010, end: 2012

REACTIONS (9)
  - Pulmonary oedema [Recovered/Resolved]
  - Wheezing [Recovering/Resolving]
  - Asthma [Recovered/Resolved]
  - Malaise [Not Recovered/Not Resolved]
  - Choking [Recovering/Resolving]
  - Bronchitis [Recovered/Resolved]
  - Fatigue [Not Recovered/Not Resolved]
  - Anaemia [Unknown]
  - Catarrh [Not Recovered/Not Resolved]

NARRATIVE: CASE EVENT DATE: 20180410
